FAERS Safety Report 12707273 (Version 1)
Quarter: 2016Q3

REPORT INFORMATION
  Report Type: Spontaneous
  Country: US (occurrence: US)
  Receive Date: 20160901
  Receipt Date: 20160901
  Transmission Date: 20161109
  Serious: No
  Sender: FDA-Public Use
  Company Number: US-PFIZER INC-2016394399

PATIENT
  Age: 7 Decade
  Sex: Female

DRUGS (2)
  1. METAMUCIL [Concomitant]
     Active Substance: PLANTAGO SEED
     Dosage: UNK
  2. EMBEDA [Suspect]
     Active Substance: MORPHINE SULFATE\NALTREXONE HYDROCHLORIDE
     Dosage: 30 MG, BID

REACTIONS (4)
  - Hyperhidrosis [Unknown]
  - Nausea [Unknown]
  - Abdominal pain upper [Unknown]
  - Muscle spasms [Unknown]
